FAERS Safety Report 9030251 (Version 4)
Quarter: 2014Q1

REPORT INFORMATION
  Report Type: Spontaneous
  Country: US (occurrence: US)
  Receive Date: 20130122
  Receipt Date: 20140217
  Transmission Date: 20141002
  Serious: No
  Sender: FDA-Public Use
  Company Number: US-009507513-1301USA006570

PATIENT
  Sex: Male
  Weight: 67.57 kg

DRUGS (1)
  1. PROPECIA [Suspect]
     Indication: ALOPECIA
     Dosage: 1 MG, DAILY
     Route: 048
     Dates: start: 20060517, end: 200612

REACTIONS (11)
  - Cognitive disorder [Not Recovered/Not Resolved]
  - Psychosexual disorder [Unknown]
  - Anxiety [Recovering/Resolving]
  - Vitamin D deficiency [Unknown]
  - Type V hyperlipidaemia [Unknown]
  - Pharyngitis [Recovered/Resolved]
  - Drug ineffective [Unknown]
  - Sexual dysfunction [Not Recovered/Not Resolved]
  - Erectile dysfunction [Recovering/Resolving]
  - Drug ineffective [Unknown]
  - Depression [Unknown]
